FAERS Safety Report 17935022 (Version 1)
Quarter: 2020Q2

REPORT INFORMATION
  Report Type: Spontaneous
  Country: US (occurrence: US)
  Receive Date: 20200623
  Receipt Date: 20200623
  Transmission Date: 20200714
  Serious: No
  Sender: FDA-Public Use
  Company Number: None

PATIENT

DRUGS (1)
  1. FARFROMBORING HAND SANITIZER WITH ALOE, FRAGRANCE-FREE, 8 OZ BOTTLES (OFFICE DEPOT) [Suspect]
     Active Substance: ALCOHOL
     Indication: ANTIBIOTIC PROPHYLAXIS

REACTIONS (3)
  - Nausea [None]
  - Product odour abnormal [None]
  - Headache [None]

NARRATIVE: CASE EVENT DATE: 20200619
